FAERS Safety Report 19719689 (Version 1)
Quarter: 2021Q3

REPORT INFORMATION
  Report Type: Spontaneous
  Country: US (occurrence: US)
  Receive Date: 20210819
  Receipt Date: 20210819
  Transmission Date: 20211014
  Serious: Yes (Other)
  Sender: FDA-Public Use
  Company Number: None

PATIENT
  Age: 47 Year
  Sex: Female
  Weight: 120.7 kg

DRUGS (4)
  1. BROMOCRIPTINE 2.5 MG [Concomitant]
  2. FIORICET 50?325?40 MG [Concomitant]
  3. REGEN?COV [Suspect]
     Active Substance: CASIRIVIMAB\IMDEVIMAB
     Indication: COVID-19
     Dates: start: 20210818, end: 20210818
  4. OMEPRAZOLE 40 MG [Concomitant]
     Active Substance: OMEPRAZOLE

REACTIONS (2)
  - Orthostatic hypotension [None]
  - Therapy cessation [None]

NARRATIVE: CASE EVENT DATE: 20210818
